FAERS Safety Report 4349232-1 (Version None)
Quarter: 2004Q2

REPORT INFORMATION
  Report Type: 
  Country: None (occurrence: None)
  Receive Date: 20040428
  Receipt Date: 19990723
  Transmission Date: 20050107
  Serious: Yes (Other)
  Sender: FDA-Public Use
  Company Number: JP-MERCK-99082283

PATIENT
  Age: 41 Year
  Sex: Female
  Weight: 73 kg

DRUGS (8)
  1. FELODIPINE [Concomitant]
     Indication: HYPERTENSION
     Route: 048
     Dates: start: 19990630
  2. COZAAR [Suspect]
     Indication: HYPERTENSION
     Route: 048
     Dates: start: 19990428, end: 19990711
  3. COZAAR [Suspect]
     Route: 048
     Dates: start: 19990712, end: 19990712
  4. PROCATEROL HYDROCHLORIDE HEMIHYDRATE [Suspect]
     Indication: ASTHMA
     Route: 048
     Dates: start: 19990712, end: 19990712
  5. PROCATEROL HYDROCHLORIDE HEMIHYDRATE [Suspect]
     Route: 048
     Dates: start: 19990714
  6. ZOCOR [Concomitant]
     Indication: HYPERCHOLESTEROLAEMIA
     Route: 048
     Dates: start: 19990428
  7. THEOPHYLLINE [Suspect]
     Indication: ASTHMA
     Route: 048
     Dates: start: 19990609, end: 19990711
  8. THEOPHYLLINE [Suspect]
     Route: 048
     Dates: start: 19990712, end: 19990712

REACTIONS (6)
  - HEART RATE INCREASED [None]
  - HYPOKALAEMIA [None]
  - INTENTIONAL OVERDOSE [None]
  - PALPITATIONS [None]
  - SUICIDE ATTEMPT [None]
  - TREMOR [None]
